FAERS Safety Report 7083392-7 (Version None)
Quarter: 2010Q4

REPORT INFORMATION
  Report Type: 
  Country: None (occurrence: None)
  Receive Date: 20101104
  Receipt Date: 20101102
  Transmission Date: 20110411
  Serious: Yes (Hospitalization)
  Sender: FDA-Public Use
  Company Number: A0788270A

PATIENT
  Age: 52 Year
  Sex: Female
  Weight: 82 kg

DRUGS (6)
  1. AVANDIA [Suspect]
     Dosage: 8MG PER DAY
     Route: 065
     Dates: start: 20020213, end: 20040716
  2. AVANDAMET [Suspect]
     Dosage: 1000MG TWICE PER DAY
     Route: 065
     Dates: start: 20040716, end: 20061101
  3. ALTACE [Concomitant]
  4. GEMFIBROZIL [Concomitant]
  5. GLYBURIDE [Concomitant]
  6. XALATAN [Concomitant]

REACTIONS (4)
  - CARDIAC FAILURE CONGESTIVE [None]
  - CORONARY ARTERY DISEASE [None]
  - MYOCARDIAL INFARCTION [None]
  - MYOCARDIAL ISCHAEMIA [None]
